FAERS Safety Report 10145888 (Version 1)
Quarter: 2014Q2

REPORT INFORMATION
  Report Type: Spontaneous
  Country: US (occurrence: None)
  Receive Date: 20140429
  Receipt Date: 20140429
  Transmission Date: 20141212
  Serious: Yes (Other)
  Sender: FDA-Public Use
  Company Number: 2014P1003479

PATIENT
  Age: 22 Year
  Sex: Male

DRUGS (1)
  1. NAPROXEN [Suspect]

REACTIONS (2)
  - Dermatitis bullous [None]
  - Stevens-Johnson syndrome [None]
